FAERS Safety Report 18956315 (Version 1)
Quarter: 2021Q1

REPORT INFORMATION
  Report Type: Spontaneous
  Country: CN (occurrence: CN)
  Receive Date: 20210301
  Receipt Date: 20210301
  Transmission Date: 20210420
  Serious: Yes (Other)
  Sender: FDA-Public Use
  Company Number: CN-BAXTER-2021BAX003772

PATIENT
  Age: 65 Year
  Sex: Female
  Weight: 54 kg

DRUGS (21)
  1. 0.9% SODIUM CHLORIDE INJECTION [Suspect]
     Active Substance: SODIUM CHLORIDE
     Dosage: DOSE RE?INTRODUCED, 3RD CYCLE, CYCLOPHOSPHAMIDE 700 MG + NS 100ML
     Route: 041
     Dates: start: 20210126
  2. 0.9% SODIUM CHLORIDE INJECTION [Suspect]
     Active Substance: SODIUM CHLORIDE
     Dosage: 4TH CYCLE, CYCLOPHOSPHAMIDE 700MG
     Route: 041
     Dates: start: 20210206
  3. PIRARUBICIN HYDROCHLORIDE [Suspect]
     Active Substance: PIRARUBICIN HYDROCHLORIDE
     Dosage: DOSE RE?INTRODUCED,  4TH CYCLE, PIRARUBICIN HYDROCHLORIDE 50MG
     Route: 041
     Dates: start: 20210206
  4. PIRARUBICIN HYDROCHLORIDE [Suspect]
     Active Substance: PIRARUBICIN HYDROCHLORIDE
     Indication: INVASIVE BREAST CARCINOMA
     Dosage: 1ST CYCLE, PIRARUBICIN HYDROCHLORIDE
     Route: 041
  5. PIRARUBICIN HYDROCHLORIDE [Suspect]
     Active Substance: PIRARUBICIN HYDROCHLORIDE
     Dosage: DOSE RE?INTRODUCTION, 3RD CYCLE, PIRARUBICIN HYDROCHLORIDE 50MG + 5%GS 100 ML
     Route: 041
     Dates: start: 20210126
  6. 0.9% SODIUM CHLORIDE INJECTION [Suspect]
     Active Substance: SODIUM CHLORIDE
     Indication: MEDICATION DILUTION
     Dosage: 1ST CYCLE, CYCLOPHOSPHAMIDE
     Route: 041
  7. 0.9% SODIUM CHLORIDE INJECTION [Suspect]
     Active Substance: SODIUM CHLORIDE
     Dosage: 2ND CYCLE, CYCLOPHOSPHAMIDE 700 MG
     Route: 041
     Dates: start: 20210116, end: 20210116
  8. DEXAMETHASONE. [Concomitant]
     Active Substance: DEXAMETHASONE
     Indication: PROPHYLAXIS
     Route: 065
     Dates: start: 20210126
  9. PIRARUBICIN HYDROCHLORIDE [Suspect]
     Active Substance: PIRARUBICIN HYDROCHLORIDE
     Dosage: 2ND CYCLE, PIRARUBICIN HYDROCHLORIDE 50MG
     Route: 041
     Dates: start: 20210116, end: 20210116
  10. DIPHENHYDRAMINE. [Suspect]
     Active Substance: DIPHENHYDRAMINE
     Indication: PROPHYLAXIS
     Route: 065
     Dates: start: 20210126
  11. TROPISETRON [Concomitant]
     Active Substance: TROPISETRON
     Indication: PROPHYLAXIS
     Route: 065
     Dates: start: 20210126
  12. ENDOXAN [Suspect]
     Active Substance: CYCLOPHOSPHAMIDE
     Dosage: 4TH CYCLE, CYCLOPHOSPHAMIDE 700 MG
     Route: 041
     Dates: start: 20210206
  13. 5% GLUCOSE  INJECTION [Suspect]
     Active Substance: DEXTROSE
     Dosage: DOSE RE?INTRODUCED, 3RD CYCLE, PIRARUBICIN HYDROCHLORIDE 50MG + 5% GS 100 ML
     Route: 041
     Dates: start: 20210126
  14. ENDOXAN [Suspect]
     Active Substance: CYCLOPHOSPHAMIDE
     Indication: INVASIVE BREAST CARCINOMA
     Dosage: 1ST CYCLE, CYCLOPHOSPHAMIDE
     Route: 041
  15. ENDOXAN [Suspect]
     Active Substance: CYCLOPHOSPHAMIDE
     Dosage: 2ND CYCLE, CYCLOPHOSPHAMIDE 700 MG
     Route: 041
     Dates: start: 20210116, end: 20210116
  16. ENDOXAN [Suspect]
     Active Substance: CYCLOPHOSPHAMIDE
     Dosage: DOSE RE?INTRODUCED, 3RD CYCLE, CYCLOPHOSPHAMIDE 700 MG + NS 100ML
     Route: 041
     Dates: start: 20210126
  17. METHYLPREDNISOLONE SODIUM SUCCINATE. [Suspect]
     Active Substance: METHYLPREDNISOLONE SODIUM SUCCINATE
     Indication: PROPHYLAXIS
     Route: 065
     Dates: start: 20210126
  18. PANTOPRAZOLE [Concomitant]
     Active Substance: PANTOPRAZOLE
     Indication: PROPHYLAXIS
     Route: 065
     Dates: start: 20210126
  19. 5% GLUCOSE  INJECTION [Suspect]
     Active Substance: DEXTROSE
     Indication: MEDICATION DILUTION
     Dosage: 1ST CYCLE, PIRARUBICIN HYDROCHLORIDE
     Route: 041
  20. 5% GLUCOSE  INJECTION [Suspect]
     Active Substance: DEXTROSE
     Dosage: 4TH CYCLE, PIRARUBICIN HYDROCHLORIDE 50MG
     Route: 041
     Dates: start: 20210206
  21. 5% GLUCOSE  INJECTION [Suspect]
     Active Substance: DEXTROSE
     Dosage: 2ND CYCLE, PIRARUBICIN HYDROCHLORIDE 50MG
     Route: 041
     Dates: start: 20210116, end: 20210116

REACTIONS (1)
  - Myelosuppression [Recovered/Resolved]

NARRATIVE: CASE EVENT DATE: 20210120
